FAERS Safety Report 8448371-3 (Version None)
Quarter: 2012Q2

REPORT INFORMATION
  Report Type: 
  Country: None (occurrence: None)
  Receive Date: 20120619
  Receipt Date: 20120615
  Transmission Date: 20120825
  Serious: Yes (Other)
  Sender: FDA-Public Use
  Company Number: US-ROCHE-1071701

PATIENT
  Sex: Female

DRUGS (20)
  1. SENNA-MINT WAF [Concomitant]
     Dates: start: 20100316
  2. XELODA [Suspect]
     Indication: BREAST CANCER
     Dosage: ON DAY 1 TO DAY 14 OF 21 DAY CYCLE
     Route: 048
     Dates: start: 20111011, end: 20120501
  3. RAMUCIRUMAB [Suspect]
     Dates: start: 20120424, end: 20120508
  4. NAPROXEN (ALEVE) [Concomitant]
     Dates: start: 20101230
  5. PYCNOGENOL [Concomitant]
     Dates: start: 20100302
  6. VITAMIN D [Concomitant]
     Dates: start: 20090804
  7. VITAMIN E [Concomitant]
     Dates: start: 20100330
  8. DOCUSATE [Concomitant]
     Dates: start: 20090824
  9. VITAMIN B COMPLEX CAP [Concomitant]
     Dates: start: 20100831
  10. MULTI-VITAMIN [Concomitant]
     Dates: start: 20090804
  11. RAMUCIRUMAB [Suspect]
     Indication: BREAST CANCER
     Route: 042
     Dates: start: 20120222, end: 20120424
  12. AMLODIPINE [Concomitant]
     Dates: start: 20100413
  13. LYRICA [Concomitant]
     Dates: start: 20080801
  14. CINNAMON [Concomitant]
     Dates: start: 20090804
  15. OXYCODONE HCL [Concomitant]
     Dates: start: 20090801
  16. ATIVAN [Concomitant]
     Dates: start: 20100302
  17. PHOSPHATIDYLSERINE [Concomitant]
     Dates: start: 20100302
  18. IBUPROFEN (ADVIL) [Concomitant]
     Dates: start: 20091123
  19. ASCORBIC ACID [Concomitant]
     Dates: start: 20090804
  20. CALCIUM CARBONATE [Concomitant]
     Dates: start: 20090804

REACTIONS (1)
  - HAEMANGIOMA OF SKIN [None]
